FAERS Safety Report 10177320 (Version 2)
Quarter: 2014Q2

REPORT INFORMATION
  Report Type: Report from Study
  Country: US (occurrence: US)
  Receive Date: 20140516
  Receipt Date: 20140623
  Transmission Date: 20141212
  Serious: Yes (Hospitalization)
  Sender: FDA-Public Use
  Company Number: US-UCBSA-121102

PATIENT
  Age: 51 Year
  Sex: Female
  Weight: 112.5 kg

DRUGS (28)
  1. CERTOLIZUMAB PEGOL ASP [Suspect]
     Indication: ANKYLOSING SPONDYLITIS
     Dosage: 200 MG, UNK
     Route: 058
     Dates: start: 20110908, end: 20140430
  2. PHENERGAN [Concomitant]
  3. SULFA [Concomitant]
  4. ALBUTEROL [Concomitant]
  5. BACLOFEN [Concomitant]
  6. ATENOLOL [Concomitant]
  7. MOBIC [Concomitant]
  8. HYDROCODONE WITH ACETAMINOPHEN [Concomitant]
  9. OXYMORPHONE [Concomitant]
  10. DIVALPROEX [Concomitant]
  11. GABAPENTIN [Concomitant]
  12. TIAGABINE [Concomitant]
  13. SEROQUEL [Concomitant]
  14. DIAZEPAM [Concomitant]
  15. SODIUM CHLORIDE [Concomitant]
  16. ESTROGEN [Concomitant]
  17. CLOTRIMAZOLE [Concomitant]
  18. FOLIC ACID [Concomitant]
  19. VITAMIN D [Concomitant]
  20. MULTIVITAMIN [Concomitant]
  21. PROAIR [Concomitant]
  22. PREMARIN [Concomitant]
     Dosage: UNK
  23. PERCOCET [Concomitant]
     Dosage: UNK
  24. NEURONTIN [Concomitant]
     Dosage: UNK
  25. TIZANIDINE [Concomitant]
     Dosage: UNK
  26. LOTRISONE [Concomitant]
     Dosage: UNK
  27. BENAZEPRIL [Concomitant]
     Dosage: UNK
  28. PREDNISONE [Concomitant]
     Indication: PNEUMONIA
     Dosage: UNK

REACTIONS (1)
  - Pneumonia [Recovered/Resolved]
